FAERS Safety Report 7729081-4 (Version None)
Quarter: 2011Q3

REPORT INFORMATION
  Report Type: 
  Country: None (occurrence: None)
  Receive Date: 20110831
  Receipt Date: 20110831
  Transmission Date: 20111222
  Serious: Yes (Disabling)
  Sender: FDA-Public Use
  Company Number: None

PATIENT
  Age: 55 Year
  Sex: Female
  Weight: 165 kg

DRUGS (2)
  1. TRAZODONE HCL [Suspect]
     Dosage: LOW - MED 1 X PM P.O. 3-6 MOS.?
     Route: 048
  2. LEVOXYL [Concomitant]

REACTIONS (2)
  - PALPITATIONS [None]
  - HEADACHE [None]
